FAERS Safety Report 6145970-9 (Version None)
Quarter: 2009Q2

REPORT INFORMATION
  Report Type: 
  Country: None (occurrence: None)
  Receive Date: 20090407
  Receipt Date: 20090331
  Transmission Date: 20091009
  Serious: Yes (Other)
  Sender: FDA-Public Use
  Company Number: US-ROCHE-624717

PATIENT
  Sex: Female

DRUGS (11)
  1. VALIUM [Suspect]
     Indication: SLEEP DISORDER THERAPY
     Dosage: DURATION: ONE YEAR AND SIX MONTHS
     Route: 048
  2. KETEK [Suspect]
     Indication: LYME DISEASE
     Dosage: TOOK ON MONDAYS THROUGH FRIDAYS
     Route: 065
     Dates: start: 20080101, end: 20090212
  3. HOMEOPATHIC THERAPY NOS [Suspect]
     Indication: DRUG USE FOR UNKNOWN INDICATION
     Route: 065
  4. IRON [Suspect]
     Route: 065
  5. FLAGYL [Suspect]
     Indication: LYME DISEASE
     Dosage: DURATION: ONE YEAR AND SIX MONTHS
     Route: 048
  6. VITAMIN B-12 [Suspect]
     Indication: DRUG USE FOR UNKNOWN INDICATION
     Dosage: DURATION: ONE YEAR AND SIX MONTHS
     Route: 065
  7. NYSTATIN [Suspect]
     Indication: FUNGAL INFECTION
     Dosage: DURATION: ONE YEAR AND SIX MONTHS
     Route: 048
  8. XANAX [Suspect]
     Indication: SLEEP DISORDER THERAPY
     Dosage: DURATION: ONE YEAR AND SIX MONTHS
     Route: 065
     Dates: end: 20090101
  9. CYMBALTA [Suspect]
     Indication: DRUG USE FOR UNKNOWN INDICATION
     Dosage: DURATION: ONE YEAR AND SIX MONTHS
     Route: 048
     Dates: end: 20090101
  10. MINOCYCLINE HCL [Suspect]
     Indication: LYME DISEASE
     Dosage: DURATION: ONE YEAR AND SIX MONTHS
     Route: 048
  11. PLAQUENIL [Concomitant]
     Dosage: DURATION: ONE YEAR AND SIX MONTHS

REACTIONS (11)
  - ALANINE AMINOTRANSFERASE INCREASED [None]
  - ASPARTATE AMINOTRANSFERASE INCREASED [None]
  - BLOOD LACTATE DEHYDROGENASE INCREASED [None]
  - DYSGEUSIA [None]
  - HEART RATE INCREASED [None]
  - HEART RATE IRREGULAR [None]
  - IRON DEFICIENCY ANAEMIA [None]
  - NAUSEA [None]
  - OFF LABEL USE [None]
  - PYREXIA [None]
  - SOMNOLENCE [None]
